FAERS Safety Report 8607746-X (Version None)
Quarter: 2012Q3

REPORT INFORMATION
  Report Type: 
  Country: None (occurrence: None)
  Receive Date: 20120821
  Receipt Date: 20120810
  Transmission Date: 20120928
  Serious: Yes (Hospitalization, Other)
  Sender: FDA-Public Use
  Company Number: PHFR2012IE003742

PATIENT
  Sex: Female

DRUGS (9)
  1. CLOZARIL [Suspect]
     Dosage: 25 MG, DAILY
     Route: 048
     Dates: start: 20120502, end: 20120531
  2. AMLODIPINE [Concomitant]
     Indication: HYPERTENSION
     Dosage: 10 MG, DAILY
     Route: 048
  3. HALOPERIDOL [Concomitant]
     Indication: PSYCHOTIC DISORDER
     Dosage: 1 MG NOCTE
     Route: 048
     Dates: start: 20120503, end: 20120508
  4. ROSUVASTATIN [Concomitant]
     Indication: HYPERCHOLESTEROLAEMIA
     Dosage: 10 MG, DAILY
     Dates: start: 20120511
  5. HALOPERIDOL [Concomitant]
     Dosage: 0.5 MG, NOCTE
     Route: 048
     Dates: end: 20120516
  6. ASPIRIN [Concomitant]
     Indication: CARDIAC DISORDER
     Dosage: UNK UKN, UNK
     Route: 048
     Dates: start: 20120511
  7. HALOPERIDOL [Concomitant]
     Dosage: 0.5 MG, NOCTE
     Route: 048
     Dates: start: 20120508, end: 20120510
  8. CLOZARIL [Suspect]
     Indication: SCHIZOPHRENIA
     Dosage: UNK UKN, UNK
     Route: 048
     Dates: start: 20120501
  9. FOLATE SODIUM [Concomitant]
     Dosage: 5 MG, DAILY
     Route: 048

REACTIONS (11)
  - DISORIENTATION [None]
  - POOR DENTAL CONDITION [None]
  - ALANINE AMINOTRANSFERASE INCREASED [None]
  - PYREXIA [None]
  - CONFUSIONAL STATE [None]
  - LOWER RESPIRATORY TRACT INFECTION [None]
  - GAMMA-GLUTAMYLTRANSFERASE INCREASED [None]
  - INFECTION [None]
  - HAEMOGLOBIN DECREASED [None]
  - SOMNOLENCE [None]
  - BLOOD ALKALINE PHOSPHATASE INCREASED [None]
